FAERS Safety Report 24647337 (Version 3)
Quarter: 2024Q4

REPORT INFORMATION
  Report Type: Spontaneous
  Country: US (occurrence: US)
  Receive Date: 20241121
  Receipt Date: 20241226
  Transmission Date: 20250114
  Serious: No
  Sender: PFIZER
  Company Number: US-PFIZER INC-PV202400122402

PATIENT
  Age: 11 Year
  Sex: Male
  Weight: 36.3 kg

DRUGS (2)
  1. GENOTROPIN [Suspect]
     Active Substance: SOMATROPIN
     Indication: Hypopituitarism
     Dosage: 1.2 MG, ALTERNATE DAY, 1.3 MG/DAY 7 DAYS/WEEK
  2. GENOTROPIN [Suspect]
     Active Substance: SOMATROPIN
     Indication: Growth hormone deficiency
     Dosage: 1.4 MG, ALTERNATE DAY, 1.3 MG/DAY 7 DAYS/WEEK

REACTIONS (2)
  - Drug dose omission by device [Unknown]
  - Device breakage [Unknown]
